FAERS Safety Report 26066210 (Version 1)
Quarter: 2025Q4

REPORT INFORMATION
  Report Type: Spontaneous
  Country: US (occurrence: None)
  Receive Date: 20251119
  Receipt Date: 20251119
  Transmission Date: 20260117
  Serious: Yes (Life-Threatening, Hospitalization, Disabling)
  Sender: FDA-CTU
  Company Number: None

PATIENT
  Age: 29 Year
  Sex: Male
  Weight: 141 kg

DRUGS (18)
  1. LEVOFLOXACIN [Suspect]
     Active Substance: LEVOFLOXACIN
     Indication: Pneumonia
     Dosage: FREQUENCY : DAILY;?
     Route: 048
     Dates: start: 20251114, end: 20251118
  2. ACETAMINOPHEN [Concomitant]
     Active Substance: ACETAMINOPHEN
  3. ALBUTEROL [Concomitant]
     Active Substance: ALBUTEROL
     Dates: start: 20251114, end: 20251118
  4. BUMETANIDE [Concomitant]
     Active Substance: BUMETANIDE
     Dates: start: 20251114, end: 20251118
  5. CHLORHEXIDINE [Concomitant]
     Active Substance: CHLORHEXIDINE
     Dates: start: 20251114, end: 20251115
  6. PRECEDEX [Concomitant]
     Active Substance: DEXMEDETOMIDINE HYDROCHLORIDE
     Dates: start: 20251114, end: 20251115
  7. FENTANYL [Concomitant]
     Active Substance: FENTANYL
     Dates: start: 20251114, end: 20251115
  8. LACTULOSE [Concomitant]
     Active Substance: LACTULOSE
     Dates: start: 20251114, end: 20251118
  9. LANSOPRAZOLE [Concomitant]
     Active Substance: LANSOPRAZOLE
     Dates: start: 20251114, end: 20251115
  10. LISINOPRIL [Concomitant]
     Active Substance: LISINOPRIL
     Dates: start: 20251114, end: 20251118
  11. MAGNESIUM SULFATE [Concomitant]
     Active Substance: MAGNESIUM SULFATE
     Dates: start: 20251116, end: 20251116
  12. METOCLOPRAMIDE [Concomitant]
     Active Substance: METOCLOPRAMIDE
     Dates: start: 20251116, end: 20251116
  13. OLANZAPINE [Concomitant]
     Active Substance: OLANZAPINE
     Dates: start: 20251115, end: 20251116
  14. POTASSIUM BICARBONATE [Concomitant]
     Active Substance: POTASSIUM BICARBONATE
     Dates: start: 20251114, end: 20251114
  15. POTASSIUM CHLORIDE [Concomitant]
     Active Substance: POTASSIUM CHLORIDE
     Dates: start: 20251115, end: 20251115
  16. PROPOFOL [Concomitant]
     Active Substance: PROPOFOL
     Dates: start: 20251114, end: 20251114
  17. RIFAXIMIN [Concomitant]
     Active Substance: RIFAXIMIN
     Dates: start: 20251114, end: 20251119
  18. SPIRONOLACTONE [Concomitant]
     Active Substance: SPIRONOLACTONE
     Dates: start: 20251114, end: 20251118

REACTIONS (7)
  - Cerebral disorder [None]
  - Seizure [None]
  - Status epilepticus [None]
  - Hypoxia [None]
  - Aspiration [None]
  - Bradycardia [None]
  - Hypotension [None]

NARRATIVE: CASE EVENT DATE: 20251118
